FAERS Safety Report 9007589 (Version 5)
Quarter: 2013Q2

REPORT INFORMATION
  Report Type: Spontaneous
  Country: DE (occurrence: DE)
  Receive Date: 20130111
  Receipt Date: 20130617
  Transmission Date: 20140414
  Serious: Yes (Life-Threatening, Hospitalization)
  Sender: FDA-Public Use
  Company Number: DE-BIOGENIDEC-2013BI002225

PATIENT
  Age: 27 Year
  Sex: Female
  Weight: 110 kg

DRUGS (8)
  1. TYSABRI [Suspect]
     Indication: RELAPSING-REMITTING MULTIPLE SCLEROSIS
     Route: 042
     Dates: start: 20120427, end: 20121220
  2. INSULIN [Concomitant]
     Indication: TYPE 2 DIABETES MELLITUS
  3. METFORMIN [Concomitant]
     Indication: DIABETES MELLITUS
     Route: 048
  4. RAMIPRIL [Concomitant]
     Indication: HYPERTENSION
     Route: 048
  5. METOPROLOL [Concomitant]
     Indication: HYPERTENSION
     Route: 048
  6. FUROSEMIDE [Concomitant]
     Indication: HYPERTENSION
  7. L-THYROX [Concomitant]
     Indication: HYPOTHYROIDISM
     Route: 048
  8. CARMEN [Concomitant]
     Indication: HYPERTENSION
     Route: 048

REACTIONS (3)
  - Pneumonia viral [Recovered/Resolved]
  - Respiratory failure [Recovered/Resolved]
  - Grand mal convulsion [Recovered/Resolved]
